FAERS Safety Report 22071802 (Version 1)
Quarter: 2023Q1

REPORT INFORMATION
  Report Type: Spontaneous
  Country: US (occurrence: US)
  Receive Date: 20230307
  Receipt Date: 20230307
  Transmission Date: 20230418
  Serious: Yes (Other)
  Sender: FDA-Public Use
  Company Number: US-BRISTOL-MYERS SQUIBB COMPANY-2023-031419

PATIENT
  Age: 73 Year
  Sex: Female
  Weight: 75 kg

DRUGS (16)
  1. REVLIMID [Suspect]
     Active Substance: LENALIDOMIDE
     Indication: Plasma cell myeloma
     Dosage: DAILY 21 DAYS ON AND 7 DAYS OFF
     Route: 048
     Dates: start: 20220829
  2. REVLIMID [Suspect]
     Active Substance: LENALIDOMIDE
     Dosage: USE S DIRECTED
     Route: 048
     Dates: start: 20220915, end: 20221006
  3. REVLIMID [Suspect]
     Active Substance: LENALIDOMIDE
     Dosage: USE S DIRECTED
     Route: 048
     Dates: start: 20221006, end: 20221103
  4. REVLIMID [Suspect]
     Active Substance: LENALIDOMIDE
     Dosage: USE S DIRECTED
     Route: 048
     Dates: start: 20221103, end: 20221115
  5. REVLIMID [Suspect]
     Active Substance: LENALIDOMIDE
     Dosage: USE S DIRECTED
     Route: 048
     Dates: start: 20221115, end: 20221207
  6. REVLIMID [Suspect]
     Active Substance: LENALIDOMIDE
     Dosage: USE S DIRECTED
     Route: 048
     Dates: start: 20221207, end: 20230104
  7. REVLIMID [Suspect]
     Active Substance: LENALIDOMIDE
     Dosage: USE S DIRECTED
     Route: 048
     Dates: start: 20230104, end: 20230208
  8. REVLIMID [Suspect]
     Active Substance: LENALIDOMIDE
     Dosage: USE S DIRECTED
     Route: 048
     Dates: start: 20230208, end: 20230302
  9. VALACYCLOVIR HYDROCHLORIDE [Concomitant]
     Active Substance: VALACYCLOVIR HYDROCHLORIDE
     Indication: Product used for unknown indication
     Route: 048
     Dates: start: 20220915, end: 20230302
  10. PROCHLORPERAZINE MALEATE [Concomitant]
     Active Substance: PROCHLORPERAZINE MALEATE
     Indication: Product used for unknown indication
     Dosage: AS NEEDED
     Route: 048
     Dates: start: 20220915, end: 20230302
  11. DEXAMETHASONE [Concomitant]
     Active Substance: DEXAMETHASONE
     Indication: Product used for unknown indication
     Dosage: INDICATED WITH/ REVILIMID
     Route: 048
     Dates: start: 20220915, end: 20230302
  12. ASPIRIN [Concomitant]
     Active Substance: ASPIRIN
     Indication: Product used for unknown indication
     Dosage: DELAYED RELEASE
     Route: 048
     Dates: start: 20220915, end: 20230302
  13. PAROXETINE HYDROCHLORIDE [Concomitant]
     Active Substance: PAROXETINE HYDROCHLORIDE
     Indication: Product used for unknown indication
     Route: 048
     Dates: start: 20220915, end: 20230302
  14. VITAMIN D3 [Concomitant]
     Active Substance: CHOLECALCIFEROL
     Indication: Product used for unknown indication
     Dosage: 50 MCG(200 DAILY
     Route: 048
     Dates: start: 20220920, end: 20230302
  15. CALCIUM CARBONATE [Concomitant]
     Active Substance: CALCIUM CARBONATE
     Indication: Product used for unknown indication
     Dosage: 1250(500  1250  DAILY
     Route: 048
     Dates: start: 20220920, end: 20230302
  16. MIRALAX [Concomitant]
     Active Substance: POLYETHYLENE GLYCOL 3350
     Indication: Product used for unknown indication
     Dosage: SCOOP AS NEEDED
     Route: 048
     Dates: start: 20220920, end: 20230302

REACTIONS (1)
  - Thrombosis [Recovering/Resolving]

NARRATIVE: CASE EVENT DATE: 20230213
